FAERS Safety Report 22521074 (Version 1)
Quarter: 2023Q2

REPORT INFORMATION
  Report Type: Spontaneous
  Country: US (occurrence: None)
  Receive Date: 20230602
  Receipt Date: 20230602
  Transmission Date: 20230721
  Serious: Yes (Hospitalization)
  Sender: FDA-Public Use
  Company Number: None

PATIENT
  Sex: Male

DRUGS (2)
  1. PALONOSETRON HYDROCHLORIDE [Suspect]
     Active Substance: PALONOSETRON HYDROCHLORIDE
     Indication: Renal cancer
     Dosage: 0.25MG ONCE PRIOR TO CHEMO IV?
     Route: 042
     Dates: start: 202302
  2. CARBOPLATIN [Suspect]
     Active Substance: CARBOPLATIN
     Indication: Renal cancer
     Dosage: 400MG DAY 1 OF 21 IV?
     Route: 042
     Dates: start: 202302

REACTIONS (1)
  - Hospitalisation [None]
